FAERS Safety Report 12120745 (Version 1)
Quarter: 2016Q1

REPORT INFORMATION
  Report Type: Spontaneous
  Country: US (occurrence: US)
  Receive Date: 20160226
  Receipt Date: 20160226
  Transmission Date: 20160526
  Serious: No
  Sender: FDA-Public Use
  Company Number: US-ALLERGAN-1316488US

PATIENT
  Age: 90 Year
  Sex: Female

DRUGS (1)
  1. REFRESH OPTIVE [Suspect]
     Active Substance: CARBOXYMETHYLCELLULOSE SODIUM\GLYCERIN
     Indication: DRY EYE
     Dosage: 2 GTT, UNK
     Route: 047

REACTIONS (7)
  - Eye irritation [Recovered/Resolved]
  - Expired product administered [Unknown]
  - Eye discharge [Recovering/Resolving]
  - Eye pain [Recovering/Resolving]
  - Foreign body sensation in eyes [Recovered/Resolved]
  - Eye irritation [Recovering/Resolving]
  - Eye pain [Not Recovered/Not Resolved]
